FAERS Safety Report 5857470-1 (Version None)
Quarter: 2008Q3

REPORT INFORMATION
  Report Type: 
  Country: None (occurrence: None)
  Receive Date: 20080826
  Receipt Date: 20080817
  Transmission Date: 20090109
  Serious: Yes (Other)
  Sender: FDA-Public Use
  Company Number: BR-BAYER-200817322LA

PATIENT
  Age: 19 Year
  Sex: Female

DRUGS (2)
  1. YASMIN [Suspect]
     Indication: DRUG USE FOR UNKNOWN INDICATION
     Route: 048
  2. YAZ [Suspect]
     Indication: PREMENSTRUAL SYNDROME
     Route: 048

REACTIONS (4)
  - CORRECTIVE LENS USER [None]
  - DIPLOPIA [None]
  - PREMENSTRUAL SYNDROME [None]
  - VISION BLURRED [None]
